FAERS Safety Report 23873812 (Version 2)
Quarter: 2024Q2

REPORT INFORMATION
  Report Type: Report from Study
  Country: RO (occurrence: RO)
  Receive Date: 20240520
  Receipt Date: 20240530
  Transmission Date: 20240716
  Serious: Yes (Other)
  Sender: FDA-Public Use
  Company Number: RO-002147023-NVSC2024RO104772

PATIENT
  Age: 74 Year
  Sex: Female

DRUGS (10)
  1. KISQALI [Suspect]
     Active Substance: RIBOCICLIB
     Indication: Pulmonary mass
     Dosage: 200 MG (3/DAY (21 DAYS 63 TABLETS)
     Route: 048
     Dates: start: 20221027, end: 202308
  2. KISQALI [Suspect]
     Active Substance: RIBOCICLIB
     Indication: Breast neoplasm
     Dosage: 200 MG (2/DAY (21 DAYS 42 TABLETS)
     Route: 048
     Dates: start: 202308
  3. INDAPAMIDE [Concomitant]
     Active Substance: INDAPAMIDE
     Indication: Hypertension
     Dosage: 1.5 MG, QD
     Route: 065
  4. LERIDIP [Concomitant]
     Indication: Hypertension
     Dosage: 10 MG, QD
     Route: 065
  5. DIOSMIN\HESPERIDIN [Concomitant]
     Active Substance: DIOSMIN\HESPERIDIN
     Indication: Hypertension
     Dosage: 1000 MG, QD
     Route: 065
  6. BETAXOLOL HYDROCHLORIDE [Concomitant]
     Active Substance: BETAXOLOL HYDROCHLORIDE
     Indication: Hypertension
     Dosage: 20 MG, QD
     Route: 065
  7. ENALAPRIL [Concomitant]
     Active Substance: ENALAPRIL
     Indication: Hypertension
     Dosage: 20 MG, BID
     Route: 065
  8. FULVESTRANT [Concomitant]
     Active Substance: FULVESTRANT
     Indication: Breast neoplasm
     Dosage: UNK
     Route: 065
     Dates: start: 20221027
  9. EUTHYROX [Concomitant]
     Active Substance: LEVOTHYROXINE SODIUM
     Indication: Thyroid disorder
     Dosage: 75 MG,5 DAYS/WEEK
     Route: 065
  10. EUTHYROX [Concomitant]
     Active Substance: LEVOTHYROXINE SODIUM
     Dosage: 50 MG, 2 DAYS/WEEK
     Route: 065

REACTIONS (5)
  - White blood cell count decreased [Recovered/Resolved]
  - Immunodeficiency [Recovered/Resolved]
  - Product use in unapproved indication [Unknown]
  - Product availability issue [Not Recovered/Not Resolved]
  - Nasopharyngitis [Not Recovered/Not Resolved]

NARRATIVE: CASE EVENT DATE: 20221027
